FAERS Safety Report 7546016-8 (Version None)
Quarter: 2011Q2

REPORT INFORMATION
  Report Type: 
  Country: None (occurrence: None)
  Receive Date: 20110614
  Receipt Date: 20110531
  Transmission Date: 20111010
  Serious: No
  Sender: FDA-Public Use
  Company Number: US-B.I. PHARMACEUTICALS,INC./RIDGEFIELD-2011-BP-10542BP

PATIENT
  Age: 78 Year
  Sex: Male

DRUGS (2)
  1. PRADAXA [Suspect]
     Indication: ATRIAL FIBRILLATION
     Dosage: 300 MG
     Route: 048
     Dates: start: 20110316
  2. AMITRIPTYLINE HYDROCHLORIDE [Concomitant]
     Indication: NERVOUSNESS
     Dosage: 10 MG
     Route: 048
     Dates: start: 20090101

REACTIONS (4)
  - BLOOD URINE PRESENT [None]
  - DYSPEPSIA [None]
  - LETHARGY [None]
  - HAEMATOSPERMIA [None]
